FAERS Safety Report 7900529-5 (Version None)
Quarter: 2011Q4

REPORT INFORMATION
  Report Type: 
  Country: None (occurrence: None)
  Receive Date: 20111108
  Receipt Date: 20111103
  Transmission Date: 20120403
  Serious: Yes (Hospitalization)
  Sender: FDA-Public Use
  Company Number: US-BRISTOL-MYERS SQUIBB COMPANY-16214264

PATIENT
  Age: 62 Year
  Sex: Female
  Weight: 64 kg

DRUGS (21)
  1. CARBOPLATIN [Suspect]
     Indication: NON-SMALL CELL LUNG CANCER
     Dosage: 1DF=6 AUC. EVERY 21 DAYS
     Route: 042
     Dates: start: 20111011
  2. RANITIDINE [Concomitant]
     Dates: start: 20111011, end: 20111011
  3. ACETAMINOPHEN [Concomitant]
  4. IBUPROFEN [Concomitant]
     Dates: start: 20110501
  5. PROCHLORPERAZINE [Concomitant]
     Dates: start: 20110929
  6. BEVACIZUMAB [Suspect]
     Indication: NON-SMALL CELL LUNG CANCER
     Dosage: EVERY 21 DAYS
     Route: 042
     Dates: start: 20111011
  7. FOLIC ACID [Concomitant]
     Dates: start: 20110920
  8. LOSARTAN [Concomitant]
     Dates: start: 20050101
  9. TYLENOL PM [Concomitant]
     Dates: start: 19960101
  10. OXYCONTIN [Concomitant]
     Dates: start: 20111007
  11. MAGNESIUM [Concomitant]
     Dates: start: 20111011
  12. PACLITAXEL [Suspect]
     Indication: NON-SMALL CELL LUNG CANCER
     Dosage: EVERY 21 DAYS
     Route: 042
     Dates: start: 20111011
  13. MIRALAX [Concomitant]
     Dates: start: 20111011, end: 20111011
  14. PALONOSETRON [Concomitant]
     Dates: start: 20111011, end: 20111011
  15. POTASSIUM [Concomitant]
     Dates: start: 20111011
  16. VITAMIN B-12 [Concomitant]
     Dates: start: 20110929
  17. ATENOLOL [Concomitant]
     Dates: start: 20050101
  18. ONDANSETRON [Concomitant]
     Dates: start: 20110922
  19. DIPHENHYDRAMINE HCL [Concomitant]
     Dates: start: 20111011
  20. SENNA-S [Concomitant]
     Dates: start: 20110923
  21. DEXAMETHASONE [Concomitant]
     Dates: start: 20111011, end: 20111011

REACTIONS (2)
  - CARDIOMYOPATHY ACUTE [None]
  - FEBRILE NEUTROPENIA [None]
